FAERS Safety Report 8921471 (Version 7)
Quarter: 2013Q2

REPORT INFORMATION
  Report Type: Spontaneous
  Country: US (occurrence: US)
  Receive Date: 20121122
  Receipt Date: 20130419
  Transmission Date: 20140414
  Serious: Yes (Hospitalization, Other)
  Sender: FDA-Public Use
  Company Number: PHEH2012US022454

PATIENT
  Sex: Female

DRUGS (17)
  1. DIOVAN HCT [Suspect]
     Indication: HYPERTENSION
     Dosage: 1 DF (80MG VALS / 12.5 MG HYDR), DAILY
     Route: 048
     Dates: start: 2005
  2. DIOVAN HCT [Suspect]
     Dosage: 1 DF (160MG VALS / 12.5 MG AMLO) DAILY
     Route: 048
     Dates: start: 20101007
  3. DIOVAN HCT [Suspect]
     Dosage: 1 DF (80MG VALS / 12.5 MG HYDR), DAILY
     Route: 048
     Dates: start: 20120913
  4. LEVOXYL [Concomitant]
     Dosage: UNK UKN, UNK
     Dates: start: 20110824
  5. LISINOPRIL HCTZ [Concomitant]
     Dosage: UNK UKN, UNK
     Dates: start: 20110727
  6. LOSARTAN POTASSIUM [Concomitant]
     Dates: start: 20120329
  7. LOVASTATIN [Concomitant]
     Dates: start: 20110628
  8. CIPROFLOXACIN HCL [Concomitant]
     Dates: start: 20110731
  9. FENOFIBRATE [Concomitant]
     Dosage: UNK UKN, UNK
     Dates: start: 20111018
  10. SULFAMETHOXAZOLE [Concomitant]
     Dosage: UNK UKN, UNK
     Dates: start: 20120227
  11. AMLODIPINE BESYLATE [Concomitant]
     Dosage: UNK UKN, UNK
     Dates: start: 20120105
  12. MECLIZINE [Concomitant]
     Dosage: UNK UKN, UNK
     Dates: start: 20111102
  13. TERCONAZOLE [Concomitant]
     Dosage: UNK UKN, UNK
     Dates: start: 20111102
  14. CEPHALEXIN [Concomitant]
     Dosage: 1 DF, (500 MG)
     Dates: start: 20111102
  15. CEPHALEXIN [Concomitant]
     Dosage: 1 DF, (250 MG)
     Dates: start: 20120410
  16. NYSTATIN/TRIAMCINOLONE [Concomitant]
     Dosage: UNK UKN, UNK
     Dates: start: 20120825
  17. NITROFURANTOIN MONO/MAC [Concomitant]
     Dosage: UNK UKN, UNK
     Dates: start: 20110120

REACTIONS (13)
  - Vertigo [Unknown]
  - Capillary fragility [Unknown]
  - Gastrointestinal disorder [Unknown]
  - Vomiting [Unknown]
  - Confusional state [Unknown]
  - Sensation of heaviness [Unknown]
  - Burning sensation [Unknown]
  - Discomfort [Unknown]
  - Feeling abnormal [Unknown]
  - Dizziness [Unknown]
  - Pollakiuria [Unknown]
  - Pain in extremity [Unknown]
  - Insomnia [Unknown]
